FAERS Safety Report 6203655-4 (Version None)
Quarter: 2009Q2

REPORT INFORMATION
  Report Type: 
  Country: None (occurrence: None)
  Receive Date: 20090521
  Receipt Date: 20090511
  Transmission Date: 20091009
  Serious: No
  Sender: FDA-Public Use
  Company Number: CIP09000948

PATIENT
  Age: 56 Year
  Sex: Female
  Weight: 65.3 kg

DRUGS (6)
  1. ACTONEL [Suspect]
     Indication: OSTEOPENIA
     Dosage: 150 MG ONCE MONTHLY, ORAL
     Route: 048
  2. MULTIVIT (VITAMINS NOS) [Concomitant]
  3. CALCIUM (CALCIUM) [Concomitant]
  4. NASONEX [Concomitant]
  5. ASTELIN /00884002/ (AZELASTINE HYDROCHLORIDE) [Concomitant]
  6. ASPIRIN [Concomitant]

REACTIONS (4)
  - ABDOMINAL PAIN [None]
  - DEHYDRATION [None]
  - NAUSEA [None]
  - VOMITING [None]
